FAERS Safety Report 6807260-8 (Version None)
Quarter: 2010Q2

REPORT INFORMATION
  Report Type: 
  Country: None (occurrence: None)
  Receive Date: 20100628
  Receipt Date: 20100628
  Transmission Date: 20101027
  Serious: Yes (Life-Threatening, Hospitalization, Other)
  Sender: FDA-Public Use
  Company Number: None

PATIENT
  Age: 36 Year
  Sex: Female
  Weight: 51.7101 kg

DRUGS (1)
  1. YASMIN [Suspect]
     Indication: CONTRACEPTION
     Dosage: ONE PILL DAILY PO
     Route: 048
     Dates: start: 20020124, end: 20080706

REACTIONS (6)
  - ANXIETY [None]
  - GALLBLADDER DISORDER [None]
  - HEARING IMPAIRED [None]
  - MALAISE [None]
  - PALPITATIONS [None]
  - VISUAL IMPAIRMENT [None]
